FAERS Safety Report 8637936 (Version 3)
Quarter: 2013Q3

REPORT INFORMATION
  Report Type: Spontaneous
  Country: US (occurrence: US)
  Receive Date: 20120627
  Receipt Date: 20130722
  Transmission Date: 20140515
  Serious: Yes (Hospitalization)
  Sender: FDA-Public Use
  Company Number: US-BAYER-2012-061905

PATIENT
  Age: 29 Year
  Sex: Female
  Weight: 59 kg

DRUGS (13)
  1. YAZ [Suspect]
     Indication: MENSTRUAL CYCLE MANAGEMENT
     Dosage: UNK
     Dates: start: 2008, end: 2009
  2. YAZ [Suspect]
     Indication: PREMENSTRUAL DYSPHORIC DISORDER
  3. YAZ [Suspect]
     Indication: CONTRACEPTION
  4. YAZ [Suspect]
     Indication: ENDOMETRIAL DISORDER
  5. YAZ [Suspect]
     Indication: ACNE
  6. YAZ [Suspect]
     Indication: PREMENSTRUAL SYNDROME
  7. TRAZODONE [Concomitant]
  8. ZOLOFT [Concomitant]
     Dosage: 50 MG, UNK
     Dates: start: 20090701
  9. VENLAFAXINE [Concomitant]
     Dosage: 37.5 MG, UNK
  10. AMITRIPTYLINE [Concomitant]
     Dosage: 25 MG, UNK
  11. HYDROCORTISONE [Concomitant]
  12. EFFEXOR [Concomitant]
  13. ELAVIL [Concomitant]
     Dosage: 25 MG, UNK

REACTIONS (5)
  - Colitis ischaemic [None]
  - Injury [None]
  - Pain [None]
  - Pain [None]
  - Mental disorder [None]
